FAERS Safety Report 8603168 (Version 2)
Quarter: 2012Q4

REPORT INFORMATION
  Report Type: 
  Country: FR (occurrence: FR)
  Receive Date: 20120607
  Receipt Date: 20120918
  Transmission Date: 20130627
  Serious: Yes (Other)
  Sender: FDA-Public Use
  Company Number: FR-PFIZER INC-2012094335

PATIENT
  Age: 46 Year
  Sex: Female

DRUGS (5)
  1. LYRICA [Suspect]
     Indication: FEELING COLD
     Dosage: 50 mg, 2x/day
  2. LYRICA [Suspect]
     Indication: PARAESTHESIA
  3. LEVOTHYROXINE [Concomitant]
     Dosage: UNK
  4. AGOMELATINE [Concomitant]
     Dosage: UNK
  5. AVLOCARDYL [Concomitant]
     Dosage: UNK

REACTIONS (6)
  - Diplopia [Recovered/Resolved]
  - Eye movement disorder [Unknown]
  - Vision blurred [Recovered/Resolved]
  - Palpitations [Recovered/Resolved]
  - Increased appetite [Unknown]
  - Drug effect incomplete [Unknown]
